FAERS Safety Report 24326666 (Version 1)
Quarter: 2024Q3

REPORT INFORMATION
  Report Type: Spontaneous
  Country: US (occurrence: None)
  Receive Date: 20240917
  Receipt Date: 20240917
  Transmission Date: 20241017
  Serious: Yes (Death, Other)
  Sender: ASTRAZENECA
  Company Number: 2024A209477

PATIENT
  Age: 71 Year
  Sex: Male

DRUGS (3)
  1. OSIMERTINIB [Suspect]
     Active Substance: OSIMERTINIB
     Indication: Lung adenocarcinoma
     Route: 048
  2. DABRAFENIB [Suspect]
     Active Substance: DABRAFENIB
     Indication: Lung adenocarcinoma
  3. TRAMETINIB [Suspect]
     Active Substance: TRAMETINIB
     Indication: Lung adenocarcinoma

REACTIONS (10)
  - Malignant neoplasm progression [Fatal]
  - Acquired gene mutation [Fatal]
  - Metastases to meninges [Fatal]
  - BRAF V600E mutation positive [Unknown]
  - Drug resistance mutation [Unknown]
  - Metastases to central nervous system [Unknown]
  - Metastases to bone [Unknown]
  - Constipation [Unknown]
  - Headache [Unknown]
  - Back pain [Unknown]
